FAERS Safety Report 7415203-1 (Version None)
Quarter: 2011Q2

REPORT INFORMATION
  Report Type: 
  Country: None (occurrence: None)
  Receive Date: 20110414
  Receipt Date: 20110412
  Transmission Date: 20111010
  Serious: Yes (Other)
  Sender: FDA-Public Use
  Company Number: US-PFIZER INC-2010116261

PATIENT
  Sex: Female
  Weight: 78.458 kg

DRUGS (9)
  1. DIAZEPAM [Concomitant]
     Indication: ANXIETY
     Dosage: 5 MG, 4X/DAY
     Route: 048
  2. DIAZEPAM [Concomitant]
     Indication: STRESS
  3. ASTHALIN [Concomitant]
     Indication: HYPERSENSITIVITY
     Dosage: UNK, 2X/DAY
     Route: 045
  4. DARIFENACIN [Concomitant]
     Indication: BLADDER DISORDER
     Dosage: 15 MG, 1X/DAY
     Route: 048
  5. MONTELUKAST [Concomitant]
     Indication: HYPERSENSITIVITY
     Dosage: 10 MG, 1X/DAY
     Route: 048
  6. WELLBUTRIN [Concomitant]
     Indication: ANXIETY
     Dosage: 150 MG, 2X/DAY
     Route: 048
  7. LYRICA [Suspect]
     Indication: FIBROMYALGIA
     Dosage: 75 MG, 2X/DAY
     Route: 048
     Dates: start: 20080701
  8. LEXAPRO [Concomitant]
     Indication: ANXIETY
     Dosage: 30 MG, DAILY
  9. LYRICA [Suspect]
     Dosage: UNK
     Route: 048
     Dates: end: 20101201

REACTIONS (9)
  - FALL [None]
  - GAIT DISTURBANCE [None]
  - ANXIETY [None]
  - MUSCLE SPASMS [None]
  - JOINT SWELLING [None]
  - FEELING ABNORMAL [None]
  - PAIN [None]
  - MOVEMENT DISORDER [None]
  - ABDOMINAL PAIN UPPER [None]
